FAERS Safety Report 10267439 (Version 3)
Quarter: 2014Q3

REPORT INFORMATION
  Report Type: Spontaneous
  Country: DE (occurrence: DE)
  Receive Date: 20140630
  Receipt Date: 20140707
  Transmission Date: 20150326
  Serious: Yes (Other)
  Sender: FDA-Public Use
  Company Number: DE-ROCHE-1216113

PATIENT
  Sex: Female

DRUGS (1)
  1. ROACTEMRA [Suspect]
     Active Substance: TOCILIZUMAB
     Indication: RHEUMATOID ARTHRITIS
     Dosage: 10 INFUSIONS TOTAL
     Route: 042
     Dates: start: 201208

REACTIONS (20)
  - Retinal vasculitis [Unknown]
  - Rheumatoid nodule [Not Recovered/Not Resolved]
  - Polyneuropathy [Unknown]
  - Haematoma [Unknown]
  - Cutaneous vasculitis [Unknown]
  - Muscular weakness [Unknown]
  - Cyanosis [Unknown]
  - Fatigue [Unknown]
  - Impaired healing [Unknown]
  - Musculoskeletal stiffness [Unknown]
  - Fluid retention [Unknown]
  - Drug ineffective [Unknown]
  - Haemorrhagic diathesis [Unknown]
  - Pain [Unknown]
  - Rash macular [Unknown]
  - Connective tissue inflammation [Unknown]
  - General physical health deterioration [Unknown]
  - Pain in extremity [Unknown]
  - Aphonia [Not Recovered/Not Resolved]
  - Cardiovascular disorder [Unknown]

NARRATIVE: CASE EVENT DATE: 2013
